FAERS Safety Report 18371186 (Version 1)
Quarter: 2020Q4

REPORT INFORMATION
  Report Type: Spontaneous
  Country: US (occurrence: US)
  Receive Date: 20201012
  Receipt Date: 20201012
  Transmission Date: 20210114
  Serious: No
  Sender: FDA-Public Use
  Company Number: US-BAUSCH-BL-2020-029119

PATIENT
  Sex: Female

DRUGS (1)
  1. MESTINON [Suspect]
     Active Substance: PYRIDOSTIGMINE BROMIDE
     Indication: PRODUCT USED FOR UNKNOWN INDICATION
     Dosage: BY 3:30 PM THE SECOND DAY THE PATIENT TOOK ONLY ONE DOSE.
     Route: 065
     Dates: start: 20170826, end: 20170827

REACTIONS (4)
  - Burning sensation [Recovering/Resolving]
  - Vertigo [Recovering/Resolving]
  - Dizziness [Recovered/Resolved]
  - Asthma [Recovering/Resolving]

NARRATIVE: CASE EVENT DATE: 20170827
